FAERS Safety Report 20382091 (Version 1)
Quarter: 2022Q1

REPORT INFORMATION
  Report Type: Spontaneous
  Country: US (occurrence: US)
  Receive Date: 20220127
  Receipt Date: 20220127
  Transmission Date: 20220424
  Serious: No
  Sender: FDA-Public Use
  Company Number: US-PCCINC-2021-PEL-000318

PATIENT

DRUGS (3)
  1. GABLOFEN [Suspect]
     Active Substance: BACLOFEN
     Indication: Product used for unknown indication
     Dosage: 273 MICROGRAM/DAY
     Route: 037
  2. GABLOFEN [Suspect]
     Active Substance: BACLOFEN
     Dosage: 25 MICROGRAM BOLUS
     Route: 065
     Dates: start: 20210429
  3. GABLOFEN [Suspect]
     Active Substance: BACLOFEN
     Dosage: 75 MICROGRAM BOLUS
     Route: 065
     Dates: start: 20210506

REACTIONS (2)
  - Muscle spasticity [Not Recovered/Not Resolved]
  - Therapy non-responder [Unknown]
